FAERS Safety Report 8460074-8 (Version None)
Quarter: 2012Q2

REPORT INFORMATION
  Report Type: 
  Country: None (occurrence: None)
  Receive Date: 20120622
  Receipt Date: 20120620
  Transmission Date: 20120825
  Serious: Yes (Life-Threatening, Hospitalization)
  Sender: FDA-Public Use
  Company Number: US-PFIZER INC-2009215426

PATIENT
  Age: 32 Year
  Sex: Male

DRUGS (7)
  1. QUETIAPINE [Suspect]
  2. VERAPAMIL HCL [Suspect]
     Dosage: 13.44 G, UNK
  3. LEVOTHYROXINE SODIUM [Suspect]
     Dosage: 1.125 MG, UNK
  4. BUPROPION [Suspect]
     Dosage: 4.8 G, UNK
  5. BENAZEPRIL [Suspect]
     Dosage: 32 DF, UNK
  6. ZOLPIDEM [Suspect]
     Dosage: 200 MG, UNK
  7. CLONAZEPAM [Suspect]
     Dosage: 22 MG, UNK

REACTIONS (2)
  - SHOCK [None]
  - INTENTIONAL OVERDOSE [None]
